FAERS Safety Report 7421247-6 (Version None)
Quarter: 2011Q2

REPORT INFORMATION
  Report Type: 
  Country: None (occurrence: None)
  Receive Date: 20110418
  Receipt Date: 20110404
  Transmission Date: 20111010
  Serious: Yes (Other)
  Sender: FDA-Public Use
  Company Number: CA-JNJFOC-20100705334

PATIENT
  Sex: Male
  Weight: 97 kg

DRUGS (18)
  1. NOVOQUININE [Concomitant]
     Route: 065
  2. VENTOLIN [Concomitant]
     Route: 065
  3. VITAMIN D [Concomitant]
     Route: 065
  4. EZETIMIBE [Concomitant]
     Route: 065
  5. ELTROXIN [Concomitant]
     Route: 065
  6. SYMBICORT [Concomitant]
     Route: 065
  7. ALTACE [Concomitant]
     Route: 065
  8. CHOLESTYRAMINE [Concomitant]
     Route: 065
  9. SINGULAIR [Concomitant]
     Route: 065
  10. CALCIUM [Concomitant]
     Route: 065
  11. FOSAMAX [Concomitant]
     Route: 065
  12. MULTI-VITAMINS [Concomitant]
     Route: 065
  13. FERROUS GLUCONATE [Concomitant]
     Route: 065
  14. METFORMIN [Concomitant]
     Route: 065
  15. PREDNISONE [Concomitant]
     Route: 065
  16. REMICADE [Suspect]
     Indication: RHEUMATOID ARTHRITIS
     Dosage: DOSE STRENGTH = 100 MG/KG
     Route: 042
  17. NITRO-DUR [Concomitant]
     Route: 065
  18. AVANDIA [Concomitant]
     Route: 065

REACTIONS (4)
  - TOOTH FRACTURE [None]
  - TOOTH INFECTION [None]
  - TEETH BRITTLE [None]
  - GINGIVAL INFECTION [None]
